FAERS Safety Report 7830651-3 (Version None)
Quarter: 2011Q4

REPORT INFORMATION
  Report Type: 
  Country: None (occurrence: None)
  Receive Date: 20111021
  Receipt Date: 20111017
  Transmission Date: 20120403
  Serious: Yes (Hospitalization)
  Sender: FDA-Public Use
  Company Number: US-ABBOTT-11P-163-0865335-00

PATIENT
  Sex: Female

DRUGS (2)
  1. UNKNOWN MEDICATIONS [Concomitant]
     Indication: CYSTIC FIBROSIS
  2. CREON [Suspect]
     Indication: PANCREATIC INSUFFICIENCY
     Dates: start: 20090101, end: 20111005

REACTIONS (5)
  - DEHYDRATION [None]
  - SMALL INTESTINAL OBSTRUCTION [None]
  - INTESTINAL OBSTRUCTION [None]
  - ABDOMINAL PAIN [None]
  - DECREASED APPETITE [None]
